FAERS Safety Report 8166669-3 (Version None)
Quarter: 2012Q1

REPORT INFORMATION
  Report Type: 
  Country: None (occurrence: None)
  Receive Date: 20120227
  Receipt Date: 20120213
  Transmission Date: 20120608
  Serious: Yes (Death)
  Sender: FDA-Public Use
  Company Number: CH-MYLANLABS-2012S1003550

PATIENT
  Age: 18 Year
  Sex: Female

DRUGS (6)
  1. ACETAMINOPHEN [Concomitant]
     Route: 048
  2. HALOPERIDOL [Suspect]
     Indication: STRESS
     Dosage: 1MG
     Route: 065
  3. HALOPERIDOL [Suspect]
     Indication: AGITATION
     Dosage: 1MG
     Route: 065
  4. DIAZEPAM [Concomitant]
     Route: 065
  5. FLURAZEPAM [Concomitant]
     Route: 065
  6. IMIPRAMINE [Concomitant]
     Route: 065

REACTIONS (1)
  - CARDIAC ARREST [None]
